FAERS Safety Report 14612726 (Version 1)
Quarter: 2018Q1

REPORT INFORMATION
  Report Type: Spontaneous
  Country: US (occurrence: US)
  Receive Date: 20180307
  Receipt Date: 20180307
  Transmission Date: 20180509
  Serious: Yes (Hospitalization)
  Sender: FDA-Public Use
  Company Number: None

PATIENT
  Sex: Male

DRUGS (8)
  1. ZYTIGA [Suspect]
     Active Substance: ABIRATERONE ACETATE
     Indication: PROSTATE CANCER
     Route: 048
  2. ENALAPRIL [Concomitant]
     Active Substance: ENALAPRIL
  3. MIRTAZAPINE. [Concomitant]
     Active Substance: MIRTAZAPINE
  4. FENTANYL. [Concomitant]
     Active Substance: FENTANYL
  5. FLUTICASONE. [Concomitant]
     Active Substance: FLUTICASONE
  6. SIMVASTATIN. [Concomitant]
     Active Substance: SIMVASTATIN
  7. IBUPROFEN. [Concomitant]
     Active Substance: IBUPROFEN
  8. NITROGLYCERIN. [Concomitant]
     Active Substance: NITROGLYCERIN

REACTIONS (1)
  - Fall [None]
